FAERS Safety Report 4499004-2 (Version None)
Quarter: 2004Q4

REPORT INFORMATION
  Report Type: 
  Country: None (occurrence: None)
  Receive Date: 20041108
  Receipt Date: 20041022
  Transmission Date: 20050328
  Serious: Yes (Hospitalization)
  Sender: FDA-Public Use
  Company Number: A01200405300

PATIENT
  Age: 67 Year
  Sex: Female

DRUGS (8)
  1. ELOXATIN [Suspect]
     Indication: COLON CANCER
     Dosage: 180 MG INTRAVENOUS NOS
     Route: 042
     Dates: start: 20040806, end: 20040806
  2. ELOXATIN [Suspect]
     Indication: METASTASES TO LIVER
     Dosage: 180 MG INTRAVENOUS NOS
     Route: 042
     Dates: start: 20040806, end: 20040806
  3. ELOXATIN [Suspect]
     Indication: METASTASES TO LUNG
     Dosage: 180 MG INTRAVENOUS NOS
     Route: 042
     Dates: start: 20040806, end: 20040806
  4. ONDANSETRON [Concomitant]
  5. LEUCOVORIN [Concomitant]
  6. BETAMETHASONE [Concomitant]
  7. ATENOLOL [Concomitant]
  8. FLUOROURACIL [Concomitant]

REACTIONS (4)
  - BLINDNESS TRANSIENT [None]
  - PHOSPHENES [None]
  - VISUAL FIELD DEFECT [None]
  - VITREOUS FLOATERS [None]
